FAERS Safety Report 5388992-8 (Version None)
Quarter: 2007Q3

REPORT INFORMATION
  Report Type: 
  Country: None (occurrence: None)
  Receive Date: 20070717
  Receipt Date: 20070706
  Transmission Date: 20080115
  Serious: Yes (Other)
  Sender: FDA-Public Use
  Company Number: PHBS2007JP08599

PATIENT
  Age: 15 Year
  Sex: Male
  Weight: 62 kg

DRUGS (15)
  1. NEORAL [Suspect]
     Indication: NEPHROTIC SYNDROME
     Dosage: 125 MG/DAY
     Route: 048
     Dates: start: 20000914, end: 20010110
  2. NEORAL [Suspect]
     Dosage: 100 MG/DAY
     Route: 048
     Dates: start: 20010111, end: 20040322
  3. NEORAL [Suspect]
     Dosage: 75 MG/DAY
     Route: 048
     Dates: start: 20040323, end: 20040916
  4. NEORAL [Suspect]
     Dosage: 50 MG/DAY
     Route: 048
     Dates: start: 20040917, end: 20040930
  5. NEORAL [Suspect]
     Dosage: 200 MG/DAY
     Route: 048
     Dates: start: 20041001, end: 20041018
  6. NEORAL [Suspect]
     Dosage: 150 MG/DAY
     Route: 048
     Dates: start: 20041019, end: 20060220
  7. NEORAL [Suspect]
     Dosage: 200 MG/DAY
     Route: 048
     Dates: start: 20060120, end: 20061016
  8. NEORAL [Suspect]
     Dosage: 140 MG/DAY
     Route: 048
     Dates: start: 20061017, end: 20070122
  9. NEORAL [Suspect]
     Dosage: 50 MG/DAY
     Route: 048
     Dates: start: 20070122, end: 20070511
  10. NEORAL [Suspect]
     Dosage: 100 MG/DAY
     Route: 048
     Dates: start: 20070512
  11. SANDIMMUNE [Suspect]
     Indication: NEPHROTIC SYNDROME
     Dosage: 100 MG/DAY
     Route: 048
     Dates: start: 20000201
  12. SANDIMMUNE [Suspect]
     Dosage: 150 MG/DAY
     Route: 048
     Dates: end: 20000913
  13. CELLCEPT [Concomitant]
     Indication: NEPHROTIC SYNDROME
     Dosage: 1000 MG/DAY
     Route: 048
     Dates: start: 20070101
  14. CELLCEPT [Concomitant]
     Dosage: 1500 MG/DAY
     Route: 048
  15. CELLCEPT [Concomitant]
     Dosage: 2000 MG/DAY
     Route: 048

REACTIONS (8)
  - CHRONIC SINUSITIS [None]
  - GLOMERULOSCLEROSIS [None]
  - KIDNEY FIBROSIS [None]
  - NEPHRITIS [None]
  - NEPHROPATHY TOXIC [None]
  - NEPHROTIC SYNDROME [None]
  - PROTEIN URINE PRESENT [None]
  - THERAPEUTIC RESPONSE DECREASED [None]
